FAERS Safety Report 9187876 (Version 1)
Quarter: 2013Q1

REPORT INFORMATION
  Report Type: Spontaneous
  Country: US (occurrence: US)
  Receive Date: 20130325
  Receipt Date: 20130325
  Transmission Date: 20140127
  Serious: No
  Sender: FDA-Public Use
  Company Number: US-MYLANLABS-2012S1014723

PATIENT
  Age: 45 Year
  Sex: Female

DRUGS (4)
  1. FENTANYL TRANSDERMAL SYSTEM [Suspect]
     Indication: PAIN IN EXTREMITY
     Dosage: Q72HR
     Route: 062
     Dates: start: 20120714, end: 20120715
  2. FENTANYL TRANSDERMAL SYSTEM [Suspect]
     Indication: CANCER PAIN
     Dosage: Q72HR
     Route: 062
     Dates: start: 20120714, end: 20120715
  3. OXYCODONE [Concomitant]
     Indication: PAIN
  4. IBUPROFEN [Concomitant]
     Indication: PAIN

REACTIONS (1)
  - Hypoaesthesia [Recovered/Resolved]
